FAERS Safety Report 11078084 (Version 2)
Quarter: 2015Q2

REPORT INFORMATION
  Report Type: Spontaneous
  Country: EC (occurrence: EC)
  Receive Date: 20150430
  Receipt Date: 20150617
  Transmission Date: 20150821
  Serious: Yes (Death, Other)
  Sender: FDA-Public Use
  Company Number: EC-JNJFOC-20150417060

PATIENT
  Age: 69 Year
  Sex: Male

DRUGS (2)
  1. PREDNISONE. [Suspect]
     Active Substance: PREDNISONE
     Indication: PRODUCT USED FOR UNKNOWN INDICATION
     Route: 065
  2. ZYTIGA [Suspect]
     Active Substance: ABIRATERONE ACETATE
     Indication: PROSTATE CANCER
     Route: 048

REACTIONS (6)
  - Multi-organ failure [Fatal]
  - Thrombosis [Unknown]
  - Disease progression [Unknown]
  - Lymphadenopathy [Unknown]
  - Pain [Unknown]
  - Lymphoedema [Unknown]

NARRATIVE: CASE EVENT DATE: 2015
